FAERS Safety Report 16880014 (Version 2)
Quarter: 2019Q4

REPORT INFORMATION
  Report Type: Report from Study
  Country: NL (occurrence: NL)
  Receive Date: 20191003
  Receipt Date: 20191030
  Transmission Date: 20200122
  Serious: Yes (Hospitalization, Other)
  Sender: FDA-Public Use
  Company Number: NL-AMGEN-NLDSL2019159334

PATIENT
  Age: 64 Year
  Sex: Female

DRUGS (14)
  1. CELECOXIB. [Concomitant]
     Active Substance: CELECOXIB
     Dosage: 100 MILLIGRAM (2D1C)
  2. METFORMINE [METFORMIN] [Concomitant]
     Active Substance: METFORMIN HYDROCHLORIDE
     Dosage: 500 MILLIGRAM (2D1T)
  3. PANTOPRAZOL [PANTOPRAZOLE] [Concomitant]
     Active Substance: PANTOPRAZOLE
     Dosage: 40 MILLIGRAM, (1D1T) QD
  4. COLECALCIFEROL [Concomitant]
     Active Substance: CHOLECALCIFEROL
     Dosage: 50.000IE (1M1C)
  5. PREDNISOLON [PREDNISOLONE] [Concomitant]
     Active Substance: PREDNISOLONE
     Dosage: 5 MILLIGRAM (2D1T)
  6. LISINOPRIL. [Concomitant]
     Active Substance: LISINOPRIL
  7. XGEVA [Suspect]
     Active Substance: DENOSUMAB
     Indication: PROPHYLAXIS
     Dosage: 120 MILLIGRAM/1.7 ML, Q4WK
     Route: 065
     Dates: start: 20190606
  8. CALCIUM CARBONATE;COLECALCIFEROL [Concomitant]
     Active Substance: CALCIUM CARBONATE\CHOLECALCIFEROL
     Dosage: 500 MILLIGRAM, (1.25G/800IE (500MG CA) 1D1T) QD
  9. UREUM [Concomitant]
     Dosage: 100 MILLIGRAM PER GRAM (100MG/G )
  10. FENTANYL. [Concomitant]
     Active Substance: FENTANYL
     Dosage: 100UG/DO FL 8DO
  11. SALBUTAMOL [Concomitant]
     Active Substance: ALBUTEROL
     Dosage: 100 MICROGRAM,100UG/DO 200DO INHALATOR 3-4D1I
  12. FENTANYL. [Concomitant]
     Active Substance: FENTANYL
     Dosage: 100UG/DO FL 20DO, IN EACH3 DAY
  13. PREGABALINE [Concomitant]
     Active Substance: PREGABALIN
     Dosage: 75 MILLIGRAM, (2D1C)
  14. BECLOMETASON [Concomitant]
     Active Substance: BECLOMETHASONE DIPROPIONATE
     Dosage: 100/6UG/DO 120DO I

REACTIONS (4)
  - Palliative care [Unknown]
  - Metastases to breast [Unknown]
  - Metastases to the respiratory system [Unknown]
  - Metastases to neck [Unknown]
